FAERS Safety Report 25247930 (Version 1)
Quarter: 2025Q2

REPORT INFORMATION
  Report Type: Spontaneous
  Country: JP (occurrence: JP)
  Receive Date: 20250429
  Receipt Date: 20250429
  Transmission Date: 20250717
  Serious: Yes (Other)
  Sender: BRISTOL-MYERS SQUIBB COMPANY
  Company Number: JP-ONO-2025JP007275

PATIENT
  Age: 72 Year
  Sex: Male

DRUGS (2)
  1. OPDIVO [Suspect]
     Active Substance: NIVOLUMAB
     Indication: Metastatic renal cell carcinoma
     Route: 041
  2. CABOMETYX [Concomitant]
     Active Substance: CABOZANTINIB S-MALATE
     Indication: Metastatic renal cell carcinoma

REACTIONS (3)
  - Altered state of consciousness [Unknown]
  - Pyrexia [Unknown]
  - Infusion related reaction [Unknown]
